FAERS Safety Report 9441084 (Version 4)
Quarter: 2013Q4

REPORT INFORMATION
  Report Type: Spontaneous
  Country: US (occurrence: US)
  Receive Date: 20130805
  Receipt Date: 20131230
  Transmission Date: 20140711
  Serious: Yes (Death, Hospitalization)
  Sender: FDA-Public Use
  Company Number: US-GLAXOSMITHKLINE-A1036187A

PATIENT
  Age: 47 Year
  Sex: Female
  Weight: 69.1 kg

DRUGS (1)
  1. HYCAMTIN [Suspect]
     Indication: SMALL CELL LUNG CANCER
     Dosage: 1MG UNKNOWN
     Route: 065

REACTIONS (10)
  - Death [Fatal]
  - Pneumonia [Unknown]
  - Respiratory failure [Unknown]
  - Pneumothorax [Unknown]
  - Blood test abnormal [Unknown]
  - Asthenia [Unknown]
  - Confusional state [Unknown]
  - Haemodynamic instability [Unknown]
  - Lung infiltration [Unknown]
  - Pleural effusion [Unknown]
